FAERS Safety Report 22135479 (Version 2)
Quarter: 2023Q2

REPORT INFORMATION
  Report Type: Report from Study
  Country: US (occurrence: US)
  Receive Date: 20230324
  Receipt Date: 20230609
  Transmission Date: 20230721
  Serious: Yes (Other)
  Sender: FDA-Public Use
  Company Number: US-002147023-NVSC2023US063258

PATIENT
  Sex: Male

DRUGS (2)
  1. TASIGNA [Suspect]
     Active Substance: NILOTINIB
     Indication: Chronic myeloid leukaemia
     Dosage: UNK
     Route: 065
  2. TASIGNA [Suspect]
     Active Substance: NILOTINIB
     Dosage: 2 DOSAGE FORM, BID
     Route: 048
     Dates: start: 20181113

REACTIONS (5)
  - Frontotemporal dementia [Unknown]
  - Seizure [Unknown]
  - Diabetes mellitus [Unknown]
  - Cognitive disorder [Unknown]
  - Sleep apnoea syndrome [Unknown]
